FAERS Safety Report 18330243 (Version 5)
Quarter: 2020Q4

REPORT INFORMATION
  Report Type: Spontaneous
  Country: US (occurrence: US)
  Receive Date: 20200930
  Receipt Date: 20201113
  Transmission Date: 20210113
  Serious: Yes (Other)
  Sender: FDA-Public Use
  Company Number: US-PFIZER INC-2020376662

PATIENT
  Age: 72 Year
  Sex: Male
  Weight: 77.11 kg

DRUGS (3)
  1. LYRICA [Suspect]
     Active Substance: PREGABALIN
     Dosage: 200 MG, TWICE A DAY
  2. LYRICA [Suspect]
     Active Substance: PREGABALIN
     Dosage: 200 MG, ONCE DAILY
  3. LYRICA [Suspect]
     Active Substance: PREGABALIN
     Indication: NEUROPATHY PERIPHERAL
     Dosage: 300 MG, TWICE A DAY
     Dates: start: 2005

REACTIONS (8)
  - Feeling drunk [Recovering/Resolving]
  - Poor quality sleep [Recovering/Resolving]
  - Hepatic cirrhosis [Unknown]
  - Malaise [Unknown]
  - Tremor [Recovering/Resolving]
  - Withdrawal syndrome [Unknown]
  - Renal disorder [Unknown]
  - Drug dependence [Unknown]
